FAERS Safety Report 25637616 (Version 1)
Quarter: 2025Q3

REPORT INFORMATION
  Report Type: Report from Study
  Country: US (occurrence: US)
  Receive Date: 20250804
  Receipt Date: 20250804
  Transmission Date: 20251020
  Serious: Yes (Other)
  Sender: ALEXION PHARMACEUTICALS
  Company Number: US-ASTRAZENECA-202505USA027798US

PATIENT
  Age: 11 Year
  Sex: Male

DRUGS (1)
  1. STRENSIQ [Suspect]
     Active Substance: ASFOTASE ALFA
     Indication: Phosphorus metabolism disorder
     Dosage: 60 MILLIGRAM, TIW
     Route: 065

REACTIONS (8)
  - Skin atrophy [Unknown]
  - Injection site irritation [Unknown]
  - Injection site discolouration [Unknown]
  - Abdominal pain upper [Unknown]
  - Abdominal discomfort [Unknown]
  - Pain in extremity [Unknown]
  - Injection site pain [Unknown]
  - Musculoskeletal chest pain [Unknown]
